FAERS Safety Report 9474552 (Version 7)
Quarter: 2015Q1

REPORT INFORMATION
  Report Type: Spontaneous
  Country: US (occurrence: US)
  Receive Date: 20130823
  Receipt Date: 20150226
  Transmission Date: 20150721
  Serious: Yes (Hospitalization, Other)
  Sender: FDA-Public Use
  Company Number: US-009507513-1308USA009420

PATIENT
  Sex: Female
  Weight: 75.74 kg

DRUGS (7)
  1. FOSAMAX [Suspect]
     Active Substance: ALENDRONATE SODIUM
     Dosage: 10 MG, QD
     Route: 048
     Dates: start: 20000125
  2. PREDNISONE. [Concomitant]
     Active Substance: PREDNISONE
     Indication: CHRONIC OBSTRUCTIVE PULMONARY DISEASE
     Dosage: 5 MG, QD
     Dates: start: 2000
  3. VITAMINS (UNSPECIFIED) [Concomitant]
     Active Substance: VITAMINS
     Dosage: UNK, QD
     Dates: start: 2000
  4. CALCIUM (UNSPECIFIED) [Concomitant]
     Active Substance: CALCIUM
     Dosage: 1000 MG, QD
     Dates: start: 2000
  5. FOSAMAX [Suspect]
     Active Substance: ALENDRONATE SODIUM
     Indication: OSTEOPOROSIS
     Dosage: 70 MG, UNK
     Route: 048
     Dates: start: 200102, end: 200805
  6. VITAMIN D [Concomitant]
     Active Substance: CHOLECALCIFEROL
     Dosage: 400 IU, QD
     Dates: start: 2000
  7. ALENDRONATE SODIUM. [Suspect]
     Active Substance: ALENDRONATE SODIUM
     Indication: OSTEOPOROSIS
     Dosage: 70 MG, QW
     Route: 048
     Dates: start: 20080501, end: 201201

REACTIONS (17)
  - Femur fracture [Recovering/Resolving]
  - Diarrhoea [Unknown]
  - Staphylococcal infection [Unknown]
  - Lumbar vertebral fracture [Unknown]
  - Female sterilisation [Unknown]
  - Asthenia [Unknown]
  - Osteopenia [Unknown]
  - Intramedullary rod insertion [Unknown]
  - Fall [Unknown]
  - Asthma [Unknown]
  - Vitamin D deficiency [Unknown]
  - Gastrooesophageal reflux disease [Unknown]
  - Hypertension [Unknown]
  - Chronic obstructive pulmonary disease [Not Recovered/Not Resolved]
  - Neck pain [Unknown]
  - Hypothyroidism [Unknown]
  - Fibrocystic breast disease [Unknown]

NARRATIVE: CASE EVENT DATE: 2000
